FAERS Safety Report 6977252-7 (Version None)
Quarter: 2010Q3

REPORT INFORMATION
  Report Type: 
  Country: None (occurrence: None)
  Receive Date: 20100910
  Receipt Date: 20100908
  Transmission Date: 20110219
  Serious: Yes (Death, Hospitalization, Other)
  Sender: FDA-Public Use
  Company Number: ZA-ELI_LILLY_AND_COMPANY-ZA201008002958

PATIENT
  Age: 58 Year
  Sex: Male

DRUGS (2)
  1. HUMALOG MIX 50/50 [Suspect]
     Dosage: UNK, UNK
  2. HUMALOG MIX 75/25 [Suspect]

REACTIONS (4)
  - BLOOD GLUCOSE ABNORMAL [None]
  - CEREBRAL INFARCTION [None]
  - CEREBROVASCULAR ACCIDENT [None]
  - SEPSIS [None]
